FAERS Safety Report 18745174 (Version 2)
Quarter: 2021Q1

REPORT INFORMATION
  Report Type: Spontaneous
  Country: US (occurrence: US)
  Receive Date: 20210115
  Receipt Date: 20210128
  Transmission Date: 20210419
  Serious: Yes (Other)
  Sender: FDA-Public Use
  Company Number: US-GLAXOSMITHKLINE-US2021GSK009597

PATIENT
  Age: 56 Year
  Sex: Female

DRUGS (4)
  1. RANITIDINE. [Suspect]
     Active Substance: RANITIDINE
     Dosage: 300 MG PRESCRIPTION, 2X A DAY THEN SWITCHED TO DAILY IN AROUND 2013
     Route: 048
     Dates: start: 1999, end: 202005
  2. RANITIDINE. [Suspect]
     Active Substance: RANITIDINE
     Indication: GASTROOESOPHAGEAL REFLUX DISEASE
     Dosage: 150 MG PRESCRIPTION, 2X A DAY THEN SWITCHED TO DAILY IN AROUND 2013
     Route: 048
     Dates: start: 1999, end: 202005
  3. RANITIDINE. [Suspect]
     Active Substance: RANITIDINE
     Dosage: 300 MG, QD, 2X A DAY THEN SWITCHED TO DAILY IN AROUND 2013
     Route: 048
     Dates: start: 1999, end: 202005
  4. RANITIDINE. [Suspect]
     Active Substance: RANITIDINE
     Indication: GASTROOESOPHAGEAL REFLUX DISEASE
     Dosage: 150 MG PRESCRIPTION, 2X A DAY THEN SWITCHED TO DAILY IN AROUND 2013
     Route: 048
     Dates: start: 1999, end: 202005

REACTIONS (1)
  - Breast cancer [Unknown]

NARRATIVE: CASE EVENT DATE: 20111001
